FAERS Safety Report 8791762 (Version 2)
Quarter: 2012Q4

REPORT INFORMATION
  Report Type: 
  Country: US (occurrence: US)
  Receive Date: 20120918
  Receipt Date: 20121024
  Transmission Date: 20130627
  Serious: No
  Sender: FDA-Public Use
  Company Number: US-009507513-1209USA006000

PATIENT
  Age: 42 Year
  Sex: Male
  Weight: 76.19 kg

DRUGS (3)
  1. PEGINTRON [Suspect]
     Dosage: 120 Microgram, qw
     Route: 058
  2. RIBAVIRIN [Suspect]
     Dosage: 200 mg, UNK
     Route: 048
  3. TELAPREVIR [Suspect]
     Dosage: 375 mg, UNK
     Route: 048

REACTIONS (1)
  - Influenza like illness [Recovered/Resolved]
